FAERS Safety Report 16581980 (Version 3)
Quarter: 2019Q3

REPORT INFORMATION
  Report Type: Report from Study
  Country: US (occurrence: US)
  Receive Date: 20190717
  Receipt Date: 20190904
  Transmission Date: 20191004
  Serious: No
  Sender: FDA-Public Use
  Company Number: US-BEH-2019104543

PATIENT
  Age: 19 Year
  Sex: Male

DRUGS (6)
  1. ALCOHOL PAD [Suspect]
     Active Substance: ISOPROPYL ALCOHOL
     Route: 065
  2. HAEMATE P [Suspect]
     Active Substance: ANTIHEMOPHILIC FACTOR HUMAN
     Dosage: VWF:RCOF 481, SINGLE
     Route: 065
     Dates: start: 201907
  3. ALCOHOL PAD [Suspect]
     Active Substance: ISOPROPYL ALCOHOL
     Dosage: VWF:RCOF 1827, SINGLE
     Route: 065
     Dates: start: 201907
  4. ALCOHOL PAD [Suspect]
     Active Substance: ISOPROPYL ALCOHOL
     Dosage: VWF:RCOF 481, SINGLE
     Route: 065
     Dates: start: 201907
  5. HAEMATE P [Suspect]
     Active Substance: ANTIHEMOPHILIC FACTOR HUMAN
     Route: 065
  6. HAEMATE P [Suspect]
     Active Substance: ANTIHEMOPHILIC FACTOR HUMAN
     Dosage: VWF:RCOF 1827, SINGLE
     Route: 065
     Dates: start: 201907

REACTIONS (3)
  - Epistaxis [Recovered/Resolved]
  - Product preparation issue [Unknown]
  - Device issue [Unknown]

NARRATIVE: CASE EVENT DATE: 20190710
